FAERS Safety Report 20512523 (Version 7)
Quarter: 2022Q2

REPORT INFORMATION
  Report Type: Report from Study
  Country: TW (occurrence: None)
  Receive Date: 20220224
  Receipt Date: 20220609
  Transmission Date: 20220720
  Serious: Yes (Hospitalization)
  Sender: FDA-Public Use
  Company Number: TW-Eisai Medical Research-EC-2022-109184

PATIENT
  Age: 61 Year
  Sex: Male
  Weight: 62.1 kg

DRUGS (2)
  1. LENVATINIB [Suspect]
     Active Substance: LENVATINIB
     Indication: Squamous cell carcinoma of head and neck
     Route: 048
     Dates: start: 20220211, end: 20220214
  2. LENVATINIB [Suspect]
     Active Substance: LENVATINIB
     Dosage: FLUCTUATED DOSAGE STARTING AT 20 MG
     Route: 048
     Dates: start: 20220221

REACTIONS (1)
  - Dyspnoea [Recovered/Resolved]

NARRATIVE: CASE EVENT DATE: 20220215
